FAERS Safety Report 23672613 (Version 3)
Quarter: 2024Q3

REPORT INFORMATION
  Report Type: Spontaneous
  Country: US (occurrence: US)
  Receive Date: 20240326
  Receipt Date: 20240806
  Transmission Date: 20241017
  Serious: No
  Sender: NOVARTIS
  Company Number: US-002147023-NVSC2024US064444

PATIENT
  Age: 43 Year
  Sex: Female

DRUGS (1)
  1. KESIMPTA [Suspect]
     Active Substance: OFATUMUMAB
     Indication: Product used for unknown indication
     Dosage: UNK
     Route: 065

REACTIONS (7)
  - Fatigue [Unknown]
  - Pain [Unknown]
  - Urinary tract infection [Unknown]
  - Burning sensation [Unknown]
  - Urine odour abnormal [Unknown]
  - Urine abnormality [Unknown]
  - Influenza [Unknown]
